FAERS Safety Report 4787307-3 (Version None)
Quarter: 2005Q4

REPORT INFORMATION
  Report Type: 
  Country: None (occurrence: None)
  Receive Date: 20051003
  Receipt Date: 20050419
  Transmission Date: 20060501
  Serious: Yes (Other)
  Sender: FDA-Public Use
  Company Number: 004620

PATIENT
  Age: 29 Year
  Sex: Female
  Weight: 54.4 kg

DRUGS (1)
  1. APRI (DESOGESTREL, ETHINYLESTRADIOL) TABLET, 0.15/0.03MG [Suspect]
     Indication: ORAL CONTRACEPTION
     Dosage: 1.00 TABLET, QD, ORAL
     Route: 048

REACTIONS (4)
  - ABORTION INDUCED [None]
  - DRUG EXPOSURE DURING PREGNANCY [None]
  - FOETAL HEART RATE ABNORMAL [None]
  - UNINTENDED PREGNANCY [None]
